FAERS Safety Report 25417913 (Version 1)
Quarter: 2025Q2

REPORT INFORMATION
  Report Type: Spontaneous
  Country: US (occurrence: US)
  Receive Date: 20250610
  Receipt Date: 20250610
  Transmission Date: 20250717
  Serious: Yes (Other)
  Sender: PFIZER
  Company Number: US-PFIZER INC-PV202500068263

PATIENT
  Age: 43 Year
  Sex: Female

DRUGS (8)
  1. CYTARABINE [Suspect]
     Active Substance: CYTARABINE
     Indication: Acute myeloid leukaemia
  2. CYTARABINE [Suspect]
     Active Substance: CYTARABINE
     Dosage: 200 MG/M2, CONTINUOUS INFUSION
  3. DAUNORUBICIN [Suspect]
     Active Substance: DAUNORUBICIN
     Indication: Acute myeloid leukaemia
     Dosage: 60 MG/M2, DAILY
  4. THIOGUANINE [Suspect]
     Active Substance: THIOGUANINE
     Indication: Acute myeloid leukaemia
     Dosage: 100 MG/M2, 2X/DAY
  5. VANCOMYCIN [Concomitant]
     Active Substance: VANCOMYCIN
     Indication: Evidence based treatment
  6. IMIPENEM AND CILASTATIN [Concomitant]
     Active Substance: CILASTATIN SODIUM\IMIPENEM
     Indication: Evidence based treatment
  7. GENTAMICIN [Concomitant]
     Active Substance: GENTAMICIN
     Indication: Evidence based treatment
  8. ALLOPURINOL [Concomitant]
     Active Substance: ALLOPURINOL

REACTIONS (1)
  - Hidradenitis [Recovered/Resolved]
